FAERS Safety Report 9499052 (Version 2)
Quarter: 2014Q1

REPORT INFORMATION
  Report Type: Spontaneous
  Country: US (occurrence: US)
  Receive Date: 20130904
  Receipt Date: 20140121
  Transmission Date: 20141002
  Serious: Yes (Hospitalization)
  Sender: FDA-Public Use
  Company Number: US-B.I. PHARMACEUTICALS,INC./RIDGEFIELD-2013-BI-27060BP

PATIENT
  Sex: Male
  Weight: 86.18 kg

DRUGS (2)
  1. PRADAXA [Suspect]
     Indication: ATRIAL FIBRILLATION
     Dates: start: 20110517, end: 20130102
  2. BAYER ASPIRIN [Concomitant]

REACTIONS (1)
  - Gastrointestinal haemorrhage [Unknown]
